FAERS Safety Report 17283220 (Version 1)
Quarter: 2020Q1

REPORT INFORMATION
  Report Type: Spontaneous
  Country: US (occurrence: US)
  Receive Date: 20191227
  Receipt Date: 20191227
  Transmission Date: 20200409
  Serious: Yes (Hospitalization)
  Sender: FDA-Public Use
  Company Number: None

PATIENT
  Age: 79 Year
  Sex: Male

DRUGS (15)
  1. TOTAL B/C [Concomitant]
  2. ELIQUIS [Concomitant]
     Active Substance: APIXABAN
  3. NU-IRON [Concomitant]
     Active Substance: FERRIC POLYSACCHARIDE COMPLEX
  4. TRICOR [Concomitant]
     Active Substance: FENOFIBRATE
  5. LANTUS [Concomitant]
     Active Substance: INSULIN GLARGINE
  6. ASPIRIN. [Concomitant]
     Active Substance: ASPIRIN
  7. PREDNISONE. [Concomitant]
     Active Substance: PREDNISONE
  8. PROZAC [Concomitant]
     Active Substance: FLUOXETINE HYDROCHLORIDE
  9. TOPROL XL [Concomitant]
     Active Substance: METOPROLOL SUCCINATE
  10. TACROLIMUS. [Suspect]
     Active Substance: TACROLIMUS
     Dosage: ?          OTHER FREQUENCY:EVERY MORNING;?
     Route: 048
     Dates: start: 20190507
  11. TYLENOL [Concomitant]
     Active Substance: ACETAMINOPHEN
  12. CLONIDINE. [Concomitant]
     Active Substance: CLONIDINE
  13. HUMALOG [Concomitant]
     Active Substance: INSULIN LISPRO
  14. TACROLIMUS. [Suspect]
     Active Substance: TACROLIMUS
     Indication: RENAL TRANSPLANT
  15. NEXIUM [Concomitant]
     Active Substance: ESOMEPRAZOLE MAGNESIUM

REACTIONS (1)
  - Pneumonia [None]

NARRATIVE: CASE EVENT DATE: 20191101
